FAERS Safety Report 15903095 (Version 1)
Quarter: 2019Q1

REPORT INFORMATION
  Report Type: Spontaneous
  Country: GB (occurrence: GB)
  Receive Date: 20190202
  Receipt Date: 20190202
  Transmission Date: 20190417
  Serious: Yes (Other)
  Sender: FDA-Public Use
  Company Number: GB-TEVA-2019-GB-1006853

PATIENT
  Age: 6 Year
  Sex: Male
  Weight: 17 kg

DRUGS (16)
  1. DOCUSATE [Concomitant]
     Active Substance: DOCUSATE
  2. VIGABATRIN. [Concomitant]
     Active Substance: VIGABATRIN
  3. BACLOFEN. [Concomitant]
     Active Substance: BACLOFEN
  4. HYDROCORTISONE. [Concomitant]
     Active Substance: HYDROCORTISONE
  5. DOMPERIDONE [Concomitant]
     Active Substance: DOMPERIDONE
  6. ZOLADEX LA [Concomitant]
     Active Substance: GOSERELIN ACETATE
     Route: 058
  7. SODIUM CHLORIDE. [Concomitant]
     Active Substance: SODIUM CHLORIDE
     Dosage: TWICE A DAY
  8. MOVICOL [Concomitant]
     Active Substance: POLYETHYLENE GLYCOL 3350\POTASSIUM CHLORIDE\SODIUM BICARBONATE\SODIUM CHLORIDE
  9. CETIRIZINE [Concomitant]
     Active Substance: CETIRIZINE HYDROCHLORIDE
     Indication: SEASONAL ALLERGY
  10. SODIUM CHLORIDE SOLUTION 0.9% [Concomitant]
     Active Substance: SODIUM CHLORIDE
  11. SODIUM VALPROATE [Concomitant]
     Active Substance: VALPROATE SODIUM
  12. AZITHROMYCIN ANHYDROUS. [Suspect]
     Active Substance: AZITHROMYCIN ANHYDROUS
     Indication: PROPHYLAXIS
     Route: 048
     Dates: start: 2018
  13. HYOSCINE HYDROBROMIDE [Concomitant]
     Active Substance: SCOPOLAMINE
  14. LANSOPRAZOLE. [Concomitant]
     Active Substance: LANSOPRAZOLE
  15. BUSCOPAN [Concomitant]
     Active Substance: BUTYLSCOPOLAMINE BROMIDE
  16. BRUFEN [Concomitant]
     Active Substance: IBUPROFEN

REACTIONS (1)
  - Haematochezia [Unknown]
